FAERS Safety Report 25808635 (Version 1)
Quarter: 2025Q3

REPORT INFORMATION
  Report Type: Spontaneous
  Country: EU (occurrence: EU)
  Receive Date: 20250916
  Receipt Date: 20250916
  Transmission Date: 20251021
  Serious: Yes (Hospitalization)
  Sender: BOEHRINGER INGELHEIM
  Company Number: EU-BoehringerIngelheim-2025-BI-094296

PATIENT
  Age: 69 Year
  Sex: Male

DRUGS (3)
  1. EMPAGLIFLOZIN\LINAGLIPTIN [Suspect]
     Active Substance: EMPAGLIFLOZIN\LINAGLIPTIN
     Indication: Type 2 diabetes mellitus
  2. REPAGLINIDE [Concomitant]
     Active Substance: REPAGLINIDE
     Indication: Product used for unknown indication
  3. METFORMIN [Concomitant]
     Active Substance: METFORMIN HYDROCHLORIDE
     Indication: Type 2 diabetes mellitus

REACTIONS (10)
  - Urinary retention [Recovered/Resolved]
  - Aspergilloma [Recovered/Resolved]
  - Hydronephrosis [Recovered/Resolved]
  - Pyelonephritis [Recovered/Resolved]
  - Urinary tract infection enterococcal [Recovered/Resolved]
  - Bladder mass [Recovered/Resolved]
  - Fall [Unknown]
  - Candida infection [Recovered/Resolved]
  - Bladder necrosis [Recovered/Resolved]
  - Pyelitis [Recovered/Resolved]
